FAERS Safety Report 13310281 (Version 5)
Quarter: 2024Q4

REPORT INFORMATION
  Report Type: Spontaneous
  Country: US (occurrence: US)
  Receive Date: 20170309
  Receipt Date: 20241128
  Transmission Date: 20250115
  Serious: Yes (Other)
  Sender: JOHNSON AND JOHNSON
  Company Number: US-JNJFOC-20170201395

PATIENT
  Age: 9 Year
  Sex: Male

DRUGS (3)
  1. RISPERDAL [Suspect]
     Active Substance: RISPERIDONE
     Indication: Attention deficit hyperactivity disorder
     Route: 048
  2. INVEGA [Suspect]
     Active Substance: PALIPERIDONE
     Indication: Attention deficit hyperactivity disorder
     Route: 048
  3. INVEGA [Suspect]
     Active Substance: PALIPERIDONE
     Route: 048
     Dates: end: 201302

REACTIONS (4)
  - Gynaecomastia [Unknown]
  - Abnormal weight gain [Unknown]
  - Off label use [Unknown]
  - Product use in unapproved indication [Unknown]

NARRATIVE: CASE EVENT DATE: 20080201
